FAERS Safety Report 18194048 (Version 1)
Quarter: 2020Q3

REPORT INFORMATION
  Report Type: Spontaneous
  Country: DE (occurrence: DE)
  Receive Date: 20200825
  Receipt Date: 20200825
  Transmission Date: 20201103
  Serious: Yes (Hospitalization)
  Sender: FDA-Public Use
  Company Number: DE-JNJFOC-20200825125

PATIENT
  Age: 71 Year
  Sex: Male

DRUGS (10)
  1. ZYTIGA [Suspect]
     Active Substance: ABIRATERONE ACETATE
     Indication: PRODUCT USED FOR UNKNOWN INDICATION
     Dosage: 500 MG, 2?0?0?0
     Route: 048
  2. METAMIZOLE [Concomitant]
     Active Substance: METAMIZOLE
     Dosage: 500 MG, 1?1?1?1
     Route: 065
  3. METOPROLOL. [Concomitant]
     Active Substance: METOPROLOL
     Dosage: 95 MG, 1?0?1?0
     Route: 065
  4. MAGNESIUM OXIDE. [Concomitant]
     Active Substance: MAGNESIUM OXIDE
     Dosage: 1?1?0?0
  5. PREDNISOLONE. [Suspect]
     Active Substance: PREDNISOLONE
     Indication: PRODUCT USED FOR UNKNOWN INDICATION
     Dosage: LAST INTAKE UNTIL MARCH
     Route: 065
  6. SODIUM SELENITE [Concomitant]
     Active Substance: SODIUM SELENITE
     Dosage: 300 UG, 1?0?0?0
     Route: 065
  7. METFORMIN [Concomitant]
     Active Substance: METFORMIN HYDROCHLORIDE
     Dosage: 850 MG, 0?1?0?0
     Route: 048
  8. RAMIPRIL. [Concomitant]
     Active Substance: RAMIPRIL
     Dosage: 5 MG, 1?0?0?0
     Route: 065
  9. ACETYLSALICYLIC ACID [Concomitant]
     Active Substance: ASPIRIN
     Dosage: 100 MG, 0?1?0?0
     Route: 065
  10. FUROSIMIDE [Concomitant]
     Active Substance: FUROSEMIDE
     Dosage: 20 MG, 0.5?0?0?0
     Route: 065

REACTIONS (7)
  - Hypokalaemia [Recovering/Resolving]
  - Hypertension [Recovering/Resolving]
  - Electrolyte imbalance [Recovering/Resolving]
  - Cardiac failure [Recovering/Resolving]
  - Fluid retention [Recovering/Resolving]
  - Dyspnoea [Recovering/Resolving]
  - Product administration error [Unknown]

NARRATIVE: CASE EVENT DATE: 20200301
